FAERS Safety Report 10711093 (Version 1)
Quarter: 2015Q1

REPORT INFORMATION
  Report Type: Spontaneous
  Country: US (occurrence: US)
  Receive Date: 20150114
  Receipt Date: 20150114
  Transmission Date: 20150721
  Serious: No
  Sender: FDA-Public Use
  Company Number: US-009507513-1412USA003612

PATIENT
  Age: 30 Year
  Sex: Female
  Weight: 53.52 kg

DRUGS (1)
  1. NUVARING [Suspect]
     Active Substance: ETHINYL ESTRADIOL\ETONOGESTREL
     Indication: CONTRACEPTION
     Dosage: UNK
     Route: 067
     Dates: start: 201406, end: 201408

REACTIONS (4)
  - Vaginal infection [Recovered/Resolved]
  - Mood swings [Recovered/Resolved]
  - Vaginal discharge [Recovered/Resolved]
  - Loss of libido [Recovered/Resolved]

NARRATIVE: CASE EVENT DATE: 201407
